FAERS Safety Report 10973321 (Version 1)
Quarter: 2015Q1

REPORT INFORMATION
  Report Type: Spontaneous
  Country: US (occurrence: None)
  Receive Date: 20150331
  Receipt Date: 20150331
  Transmission Date: 20150721
  Serious: Yes (Death, Hospitalization)
  Sender: FDA-Public Use
  Company Number: None

PATIENT
  Age: 68 Year
  Sex: Male
  Weight: 150.4 kg

DRUGS (2)
  1. BENDAMUSTINE HYDROCHLORIDE [Suspect]
     Active Substance: BENDAMUSTINE HYDROCHLORIDE
     Dates: end: 20150304
  2. RITUXIMAB [Suspect]
     Active Substance: RITUXIMAB
     Dates: end: 20150303

REACTIONS (3)
  - Respiratory failure [None]
  - Cardiac failure congestive [None]
  - Pleural effusion [None]

NARRATIVE: CASE EVENT DATE: 20150310
